FAERS Safety Report 12204571 (Version 2)
Quarter: 2016Q2

REPORT INFORMATION
  Report Type: Report from Study
  Country: US (occurrence: US)
  Receive Date: 20160323
  Receipt Date: 20160419
  Transmission Date: 20160815
  Serious: Yes (Hospitalization, Other)
  Sender: FDA-Public Use
  Company Number: US-GILEAD-2016-0204400

PATIENT
  Age: 39 Year
  Sex: Female
  Weight: 81 kg

DRUGS (3)
  1. AMBRISENTAN [Suspect]
     Active Substance: AMBRISENTAN
     Indication: PULMONARY ARTERIAL HYPERTENSION
     Dosage: 10 MG, UNK
     Route: 048
     Dates: start: 20140728
  2. VELETRI [Concomitant]
     Active Substance: EPOPROSTENOL
  3. SILDENAFIL. [Concomitant]
     Active Substance: SILDENAFIL

REACTIONS (3)
  - Pneumonia [Recovered/Resolved]
  - Asthma [Recovered/Resolved]
  - Pulmonary arterial hypertension [Not Recovered/Not Resolved]

NARRATIVE: CASE EVENT DATE: 20160229
